FAERS Safety Report 14784242 (Version 2)
Quarter: 2018Q2

REPORT INFORMATION
  Report Type: Spontaneous
  Country: LU (occurrence: DE)
  Receive Date: 20180420
  Receipt Date: 20180510
  Transmission Date: 20180711
  Serious: Yes (Hospitalization)
  Sender: FDA-Public Use
  Company Number: LU-TEVA-2018-DE-883505

PATIENT
  Age: 78 Year
  Sex: Female

DRUGS (5)
  1. FUROSEMID 20MG [Concomitant]
     Dosage: 40 MILLIGRAM DAILY;
  2. RAMIPRIL 5MG [Concomitant]
     Active Substance: RAMIPRIL
     Dosage: 5 MILLIGRAM DAILY;
  3. BISOPROLOL 5MG [Concomitant]
     Dosage: 10 MILLIGRAM DAILY;
  4. LORAZEPAM 1MG [Concomitant]
     Active Substance: LORAZEPAM
     Dosage: 1 MILLIGRAM DAILY;
  5. FURADANTINE 100 MG [Suspect]
     Active Substance: NITROFURANTOIN
     Indication: URINARY TRACT DISORDER
     Dosage: UP TO FOUR CAPSULES PER DAY
     Route: 048
     Dates: start: 1980, end: 201804

REACTIONS (12)
  - Vitamin D deficiency [Recovering/Resolving]
  - Normochromic anaemia [Recovering/Resolving]
  - Urinary tract infection [Recovering/Resolving]
  - Weight decreased [Unknown]
  - Cough [Unknown]
  - Asthenia [Recovering/Resolving]
  - Polyneuropathy [Recovering/Resolving]
  - Gout [Recovering/Resolving]
  - Intentional product use issue [Unknown]
  - Gouty arthritis [Recovering/Resolving]
  - Fatigue [Recovering/Resolving]
  - Anaemia macrocytic [Recovering/Resolving]

NARRATIVE: CASE EVENT DATE: 1980
